FAERS Safety Report 15515236 (Version 1)
Quarter: 2018Q4

REPORT INFORMATION
  Report Type: Report from Study
  Country: JP (occurrence: JP)
  Receive Date: 20181017
  Receipt Date: 20181017
  Transmission Date: 20190205
  Serious: Yes (Other)
  Sender: FDA-Public Use
  Company Number: JP-ROCHE-2198480

PATIENT
  Sex: Female

DRUGS (2)
  1. PACLITAXEL. [Suspect]
     Active Substance: PACLITAXEL
     Indication: BREAST CANCER METASTATIC
     Route: 065
  2. BEVACIZUMAB. [Suspect]
     Active Substance: BEVACIZUMAB
     Indication: BREAST CANCER METASTATIC
     Route: 065

REACTIONS (9)
  - Hypertransaminasaemia [Unknown]
  - Gastrointestinal toxicity [Unknown]
  - Peripheral motor neuropathy [Unknown]
  - Schizophrenia [Unknown]
  - Fatigue [Unknown]
  - Peripheral sensory neuropathy [Unknown]
  - Arthralgia [Unknown]
  - Myalgia [Unknown]
  - Neutropenia [Unknown]
